FAERS Safety Report 7397200-8 (Version None)
Quarter: 2011Q2

REPORT INFORMATION
  Report Type: 
  Country: None (occurrence: None)
  Receive Date: 20110406
  Receipt Date: 20110314
  Transmission Date: 20111010
  Serious: Yes (Other)
  Sender: FDA-Public Use
  Company Number: US-BAYER-2010-003747

PATIENT
  Sex: Female
  Weight: 65.76 kg

DRUGS (6)
  1. SYNTHROID [Concomitant]
     Indication: THYROID DISORDER
     Dosage: UNK
     Dates: start: 20070101
  2. YAZ [Suspect]
     Indication: PRODUCT USED FOR UNKNOWN INDICATION
     Dosage: UNK
     Route: 048
     Dates: start: 20070801, end: 20091201
  3. OCELLA [Suspect]
     Indication: PRODUCT USED FOR UNKNOWN INDICATION
     Dosage: UNK
     Route: 048
     Dates: start: 20070801, end: 20091201
  4. PREVACID [Concomitant]
     Dosage: UNK
     Dates: start: 20080101
  5. PROMETHAZINE [Concomitant]
  6. YASMIN [Suspect]
     Indication: PRODUCT USED FOR UNKNOWN INDICATION
     Dosage: UNK
     Route: 048
     Dates: start: 20070801, end: 20091201

REACTIONS (8)
  - ANXIETY [None]
  - INJURY [None]
  - DEEP VEIN THROMBOSIS [None]
  - PAIN [None]
  - GALLBLADDER DISORDER [None]
  - BILIARY DYSKINESIA [None]
  - DECREASED APPETITE [None]
  - BULIMIA NERVOSA [None]
